FAERS Safety Report 16953569 (Version 1)
Quarter: 2019Q4

REPORT INFORMATION
  Report Type: Spontaneous
  Country: DE (occurrence: DE)
  Receive Date: 20191023
  Receipt Date: 20191023
  Transmission Date: 20200122
  Serious: Yes (Hospitalization, Other)
  Sender: FDA-Public Use
  Company Number: DE-009507513-1908DEU009944

PATIENT
  Age: 27 Year
  Sex: Female

DRUGS (4)
  1. OVALEAP [Suspect]
     Active Substance: FOLLITROPIN
     Indication: CONTROLLED OVARIAN STIMULATION
     Dosage: 100 IU, 1 TIME DAILY
     Route: 058
     Dates: start: 20190302, end: 20190311
  2. ORGALUTRAN [Suspect]
     Active Substance: GANIRELIX ACETATE
     Indication: ASSISTED FERTILISATION
     Dosage: 0.25 MG, 1 TIME DAILY
     Route: 058
     Dates: start: 20190307, end: 20190311
  3. GONADOTROPIN, CHORIONIC [Suspect]
     Active Substance: CHORIOGONADOTROPIN ALFA
     Indication: OVULATION INDUCTION
     Dosage: 5000 IU, ONCE/SINGLE
     Route: 058
     Dates: start: 20190311, end: 20190311
  4. PROGESTERONE. [Suspect]
     Active Substance: PROGESTERONE
     Indication: ASSISTED FERTILISATION
     Dosage: 100 MG, 3 TIMES DAILY
     Route: 067
     Dates: start: 20190315, end: 20190326

REACTIONS (3)
  - Ovarian hyperstimulation syndrome [Recovered/Resolved]
  - Incorrect route of product administration [Recovered/Resolved]
  - Off label use [Recovered/Resolved]

NARRATIVE: CASE EVENT DATE: 20190409
